FAERS Safety Report 18097148 (Version 2)
Quarter: 2020Q3

REPORT INFORMATION
  Report Type: Spontaneous
  Country: US (occurrence: US)
  Receive Date: 20200730
  Receipt Date: 20200813
  Transmission Date: 20201103
  Serious: Yes (Other)
  Sender: FDA-Public Use
  Company Number: US-ACTELION-A-NJ2020-207563

PATIENT
  Age: 47 Year
  Sex: Male

DRUGS (2)
  1. ADEMPAS [Concomitant]
     Active Substance: RIOCIGUAT
  2. OPSUMIT [Suspect]
     Active Substance: MACITENTAN
     Indication: PULMONARY ARTERIAL HYPERTENSION
     Dosage: 10 MG, QD
     Route: 048

REACTIONS (12)
  - Hemiparesis [Unknown]
  - Loss of consciousness [Unknown]
  - Head injury [Unknown]
  - Dizziness [Unknown]
  - Dyspnoea exertional [Unknown]
  - Drug abuse [Unknown]
  - Cardiovascular disorder [Unknown]
  - Fatigue [Unknown]
  - Exercise tolerance decreased [Unknown]
  - Blood pressure decreased [Unknown]
  - Fall [Unknown]
  - Oedema peripheral [Unknown]

NARRATIVE: CASE EVENT DATE: 202006
